FAERS Safety Report 11615117 (Version 2)
Quarter: 2015Q4

REPORT INFORMATION
  Report Type: Spontaneous
  Country: KR (occurrence: KR)
  Receive Date: 20151009
  Receipt Date: 20151020
  Transmission Date: 20160304
  Serious: Yes (Death)
  Sender: FDA-Public Use
  Company Number: KR-MALLINCKRODT (FORMERLY IKARIA)-201510000268

PATIENT
  Age: 27 Day
  Sex: Female
  Weight: .76 kg

DRUGS (9)
  1. CEFOTAXIME [Concomitant]
     Active Substance: CEFOTAXIME SODIUM
     Dosage: UNK UNK, UNKNOWN
     Dates: start: 2015, end: 2015
  2. OXYGEN. [Concomitant]
     Active Substance: OXYGEN
     Dosage: UNK
     Dates: start: 2015, end: 2015
  3. VANCOMYCIN [Concomitant]
     Active Substance: VANCOMYCIN
     Dosage: UNK UNK, UNKNOWN
     Dates: start: 2015, end: 2015
  4. IBUPROFEN. [Concomitant]
     Active Substance: IBUPROFEN
     Dosage: UNK, 3 CYCLES
     Route: 042
     Dates: start: 2015, end: 2015
  5. VIAGRA [Concomitant]
     Active Substance: SILDENAFIL CITRATE
     Dosage: UNK UNK, UNKNOWN
     Route: 048
     Dates: start: 2015, end: 2015
  6. INOMAX [Suspect]
     Active Substance: NITRIC OXIDE
     Indication: PERSISTENT FOETAL CIRCULATION
     Dosage: UNK UNK, CONTINUOUS
     Dates: start: 20150924, end: 20150925
  7. INOMAX [Suspect]
     Active Substance: NITRIC OXIDE
     Indication: HYPOXIA
  8. VENTAVIS [Concomitant]
     Active Substance: ILOPROST
     Dosage: UNK UNK, UNKNOWN
     Dates: start: 2015, end: 2015
  9. SURFACTANTE B RICHET [Concomitant]
     Dosage: UNK
     Dates: start: 2015, end: 2015

REACTIONS (4)
  - Persistent foetal circulation [Fatal]
  - Bronchopulmonary dysplasia [Fatal]
  - Off label use [Unknown]
  - Cardio-respiratory arrest neonatal [None]

NARRATIVE: CASE EVENT DATE: 20150925
